FAERS Safety Report 12177307 (Version 1)
Quarter: 2016Q1

REPORT INFORMATION
  Report Type: Spontaneous
  Country: US (occurrence: US)
  Receive Date: 20160314
  Receipt Date: 20160314
  Transmission Date: 20160526
  Serious: Yes (Hospitalization)
  Sender: FDA-Public Use
  Company Number: US-TEVA-641827USA

PATIENT
  Age: 84 Year
  Sex: Female

DRUGS (4)
  1. QVAR [Suspect]
     Active Substance: BECLOMETHASONE DIPROPIONATE
     Indication: LUNG DISORDER
     Route: 065
  2. PREDNISONE. [Suspect]
     Active Substance: PREDNISONE
     Route: 065
  3. PREDNISONE. [Suspect]
     Active Substance: PREDNISONE
     Route: 065
  4. ALBUTEROL SULFATE. [Suspect]
     Active Substance: ALBUTEROL SULFATE
     Route: 065

REACTIONS (12)
  - Feeling abnormal [Recovered/Resolved]
  - Wheezing [Recovered/Resolved]
  - Feeding disorder [Recovered/Resolved]
  - Sputum discoloured [Not Recovered/Not Resolved]
  - Oral infection [Recovered/Resolved]
  - Blood pressure increased [Recovered/Resolved]
  - Dyspnoea [Recovered/Resolved]
  - Drug ineffective [Unknown]
  - Dehydration [Recovered/Resolved]
  - Lung infection [Recovered/Resolved]
  - Drug dose omission [Recovered/Resolved]
  - Tremor [Unknown]

NARRATIVE: CASE EVENT DATE: 20151123
